FAERS Safety Report 5472332-X (Version None)
Quarter: 2007Q3

REPORT INFORMATION
  Report Type: 
  Country: None (occurrence: None)
  Receive Date: 20070927
  Receipt Date: 20070911
  Transmission Date: 20080115
  Serious: Yes (Other)
  Sender: FDA-Public Use
  Company Number: 6176/2007S1008561

PATIENT
  Age: 17 Year
  Sex: Female

DRUGS (3)
  1. AMNESTEEM [Suspect]
     Indication: ACNE
     Dosage: 40 MG, QD, PO; 20 MG, PO; 80 MG, QD, PO
     Route: 048
     Dates: start: 20070501, end: 20070911
  2. AMNESTEEM [Suspect]
     Indication: ACNE
     Dosage: 40 MG, QD, PO; 20 MG, PO; 80 MG, QD, PO
     Route: 048
     Dates: end: 20070911
  3. AMNESTEEM [Suspect]
     Indication: ACNE
     Dosage: 40 MG, QD, PO; 20 MG, PO; 80 MG, QD, PO
     Route: 048
     Dates: start: 20070501

REACTIONS (2)
  - DEPRESSION [None]
  - INTENTIONAL SELF-INJURY [None]
